FAERS Safety Report 6828266-9 (Version None)
Quarter: 2010Q3

REPORT INFORMATION
  Report Type: 
  Country: None (occurrence: None)
  Receive Date: 20100708
  Receipt Date: 20100708
  Transmission Date: 20110219
  Serious: Yes (Other)
  Sender: FDA-Public Use
  Company Number: None

PATIENT
  Age: 48 Year
  Sex: Female

DRUGS (1)
  1. OMNIPAQUE 350 [Suspect]
     Indication: COMPUTERISED TOMOGRAM
     Dosage: OMNIPAQUE 350 70 ML X1 DOSE IV/IVPB
     Route: 042
     Dates: start: 20100701

REACTIONS (3)
  - HEART RATE ABNORMAL [None]
  - TREMOR [None]
  - UNRESPONSIVE TO STIMULI [None]
